FAERS Safety Report 7064910-1 (Version None)
Quarter: 2010Q4

REPORT INFORMATION
  Report Type: 
  Country: None (occurrence: None)
  Receive Date: 20101027
  Receipt Date: 19920817
  Transmission Date: 20110411
  Serious: Yes (Death, Life-Threatening)
  Sender: FDA-Public Use
  Company Number: US-ROCHE-920201350001

PATIENT
  Sex: Male
  Weight: 72.6 kg

DRUGS (8)
  1. VERSED [Suspect]
     Route: 042
     Dates: start: 19911217, end: 19911217
  2. ANCEF [Concomitant]
     Route: 065
     Dates: start: 19911216, end: 19911219
  3. CARAFATE [Concomitant]
     Route: 065
     Dates: end: 19911219
  4. ALBUTEROL [Concomitant]
     Route: 055
     Dates: start: 19911216, end: 19911219
  5. DEMEROL [Concomitant]
     Route: 030
     Dates: start: 19911216, end: 19911217
  6. SUBLIMAZE PRESERVATIVE FREE [Concomitant]
     Route: 065
     Dates: start: 19911217, end: 19911217
  7. TETRACAINE POLYGYL STERILE OPHTHALMIC SOLUTION [Concomitant]
     Route: 065
     Dates: start: 19911217, end: 19911217
  8. NITROUS OXIDE [Concomitant]
     Route: 065
     Dates: start: 19911217, end: 19911217

REACTIONS (3)
  - BRADYCARDIA [None]
  - CARDIAC ARREST [None]
  - HYPOTENSION [None]
